FAERS Safety Report 8331934-3 (Version None)
Quarter: 2012Q2

REPORT INFORMATION
  Report Type: 
  Country: None (occurrence: None)
  Receive Date: 20120502
  Receipt Date: 20120420
  Transmission Date: 20120825
  Serious: No
  Sender: FDA-Public Use
  Company Number: US-ELI_LILLY_AND_COMPANY-US201203007862

PATIENT
  Sex: Female
  Weight: 58.957 kg

DRUGS (7)
  1. FORTEO [Suspect]
     Indication: OSTEOPOROSIS
     Dosage: 20 UG, QD
     Route: 065
     Dates: start: 20120101, end: 20120101
  2. LYRICA [Concomitant]
     Dosage: UNK, UNKNOWN
     Route: 065
  3. FORTEO [Suspect]
     Dosage: 20 UG, QD
     Route: 065
     Dates: start: 20120204
  4. VITAMIN D [Concomitant]
  5. CALCIUM [Concomitant]
     Dosage: UNK, UNKNOWN
     Route: 065
  6. HYDROCODONE [Concomitant]
  7. LORAZEPAM [Concomitant]
     Dosage: UNK, UNKNOWN
     Route: 065

REACTIONS (1)
  - NERVE COMPRESSION [None]
